FAERS Safety Report 9265629 (Version 1)
Quarter: 2013Q2

REPORT INFORMATION
  Report Type: Spontaneous
  Country: FR (occurrence: FR)
  Receive Date: 20130501
  Receipt Date: 20130501
  Transmission Date: 20140414
  Serious: Yes (Other)
  Sender: FDA-Public Use
  Company Number: FR-ASTRAZENECA-2013SE28578

PATIENT
  Age: 29846 Day
  Sex: Female

DRUGS (3)
  1. INEXIUM [Suspect]
     Route: 048
     Dates: start: 20130410, end: 20130419
  2. ACUPAN [Concomitant]
     Dosage: AS REQUIRED
  3. EUPANTOL [Concomitant]
     Dates: start: 20130402, end: 20130410

REACTIONS (1)
  - Neutropenia [Recovering/Resolving]
